FAERS Safety Report 5878003-X (Version None)
Quarter: 2008Q3

REPORT INFORMATION
  Report Type: 
  Country: None (occurrence: None)
  Receive Date: 20080909
  Receipt Date: 20080909
  Transmission Date: 20090109
  Serious: No
  Sender: FDA-Public Use
  Company Number: None

PATIENT
  Age: 59 Year
  Sex: Female
  Weight: 49.8957 kg

DRUGS (1)
  1. COREG [Suspect]
     Indication: MYOCARDIAL INFARCTION
     Dosage: ONE TAB BID -TWICE A DAY PO
     Route: 048
     Dates: start: 20070603, end: 20080908

REACTIONS (5)
  - DISTURBANCE IN ATTENTION [None]
  - FEELING ABNORMAL [None]
  - HYPOTENSION [None]
  - HYPOVOLAEMIA [None]
  - SOMNOLENCE [None]
